FAERS Safety Report 19056802 (Version 1)
Quarter: 2021Q1

REPORT INFORMATION
  Report Type: Spontaneous
  Country: US (occurrence: US)
  Receive Date: 20210325
  Receipt Date: 20210325
  Transmission Date: 20210420
  Serious: Yes (Hospitalization)
  Sender: FDA-Public Use
  Company Number: None

PATIENT
  Age: 54 Year

DRUGS (14)
  1. ENBREL [Suspect]
     Active Substance: ETANERCEPT
     Indication: COUGH
     Route: 058
     Dates: start: 20200615
  2. LOMAIRA [Concomitant]
     Active Substance: PHENTERMINE HYDROCHLORIDE
  3. ESTRA/NORETH [Concomitant]
  4. PREDNISONE. [Concomitant]
     Active Substance: PREDNISONE
  5. MONTELUKAST [Concomitant]
     Active Substance: MONTELUKAST SODIUM
  6. PANTOPRAZOLE [Concomitant]
     Active Substance: PANTOPRAZOLE
  7. FAMOTIINE [Concomitant]
  8. METHOTREXATE. [Concomitant]
     Active Substance: METHOTREXATE
  9. OZEMPIC [Concomitant]
     Active Substance: SEMAGLUTIDE
  10. TOPIRAMATE. [Concomitant]
     Active Substance: TOPIRAMATE
  11. LEVOCETIRIZI [Concomitant]
  12. CITALIOPRAM [Concomitant]
  13. METHOCARBAM [Concomitant]
     Active Substance: METHOCARBAMOL
  14. FLUTICASONE. [Concomitant]
     Active Substance: FLUTICASONE

REACTIONS (1)
  - Intentional dose omission [None]

NARRATIVE: CASE EVENT DATE: 20210324
